FAERS Safety Report 13550928 (Version 2)
Quarter: 2017Q3

REPORT INFORMATION
  Report Type: Spontaneous
  Country: US (occurrence: US)
  Receive Date: 20170516
  Receipt Date: 20170721
  Transmission Date: 20171127
  Serious: Yes (Hospitalization, Other)
  Sender: FDA-Public Use
  Company Number: US-PFIZER INC-2017211143

PATIENT
  Age: 79 Year
  Sex: Male
  Weight: 94.35 kg

DRUGS (1)
  1. LYRICA [Suspect]
     Active Substance: PREGABALIN
     Indication: NEUROPATHY PERIPHERAL
     Dosage: 75 MG, 3X/DAY AFTER EACH MEAL
     Route: 048
     Dates: start: 2017

REACTIONS (6)
  - Heart rate irregular [Unknown]
  - Loss of consciousness [Recovering/Resolving]
  - Aortic occlusion [Recovering/Resolving]
  - Blood pressure decreased [Unknown]
  - Pre-existing condition improved [Unknown]
  - Therapeutic response unexpected [Unknown]

NARRATIVE: CASE EVENT DATE: 20170409
